FAERS Safety Report 25613565 (Version 4)
Quarter: 2025Q3

REPORT INFORMATION
  Report Type: Report from Study
  Country: CA (occurrence: CA)
  Receive Date: 20250728
  Receipt Date: 20250903
  Transmission Date: 20251021
  Serious: Yes (Hospitalization, Other)
  Sender: IPSEN BIOPHARMACEUTICALS, INC.
  Company Number: CA-IPSEN Group, Research and Development-2025-18352

PATIENT
  Age: 59 Year
  Sex: Female
  Weight: 67.2 kg

DRUGS (11)
  1. LANREOTIDE ACETATE [Suspect]
     Active Substance: LANREOTIDE ACETATE
     Indication: Carcinoid syndrome
     Dosage: DEEP SUBCUTANEOUS
     Route: 058
     Dates: start: 20191113
  2. LANREOTIDE ACETATE [Suspect]
     Active Substance: LANREOTIDE ACETATE
     Dosage: DEEP SUBCUTANEOUS
     Route: 058
     Dates: start: 20250618
  3. LANREOTIDE ACETATE [Suspect]
     Active Substance: LANREOTIDE ACETATE
     Dosage: DEEP SUBCUTANEOUS?AS PER POST-INJECTION REPORT DATED 18-JUN-2025, LOT-015041, EXPIRATION DATE-2027/12/31
     Route: 058
  4. CALCIUM CARBONATE\VITAMIN D [Concomitant]
     Active Substance: CALCIUM CARBONATE\VITAMIN D
  5. HYDROXYCHLOROQUINE [Concomitant]
     Active Substance: HYDROXYCHLOROQUINE
  6. LEVOTHYROXINE [Concomitant]
     Active Substance: LEVOTHYROXINE
  7. RISEDRONATE SODIUM [Concomitant]
     Active Substance: RISEDRONATE SODIUM
  8. SYNTHROID [Concomitant]
     Active Substance: LEVOTHYROXINE SODIUM
  9. METHOTREXATE [Concomitant]
     Active Substance: METHOTREXATE
  10. ETANERCEPT [Concomitant]
     Active Substance: ETANERCEPT
  11. FERROUS SULFATE [Concomitant]
     Active Substance: FERROUS SULFATE

REACTIONS (5)
  - Malignant neoplasm progression [Recovering/Resolving]
  - Weight decreased [Recovering/Resolving]
  - Asthenia [Recovering/Resolving]
  - Abdominal cavity drainage [Not Recovered/Not Resolved]
  - Inappropriate schedule of product administration [Unknown]

NARRATIVE: CASE EVENT DATE: 20250701
